FAERS Safety Report 24248403 (Version 2)
Quarter: 2024Q4

REPORT INFORMATION
  Report Type: Spontaneous
  Country: GB (occurrence: GB)
  Receive Date: 20240826
  Receipt Date: 20241025
  Transmission Date: 20250114
  Serious: Yes (Hospitalization)
  Sender: MYLAN
  Company Number: GB-MYLANLABS-2024M1077461

PATIENT
  Age: 49 Year
  Sex: Female

DRUGS (8)
  1. CLOZARIL [Suspect]
     Active Substance: CLOZAPINE
     Indication: Schizophrenia
     Dosage: UNK
     Route: 048
     Dates: start: 20010820, end: 202408
  2. CLOZARIL [Suspect]
     Active Substance: CLOZAPINE
     Dosage: UNK
     Route: 048
     Dates: start: 20240815
  3. CLOZARIL [Suspect]
     Active Substance: CLOZAPINE
     Dosage: 25 MILLIGRAM, QD (DAILY)
     Route: 048
  4. CLOZARIL [Suspect]
     Active Substance: CLOZAPINE
     Dosage: 200 MILLIGRAM, PM (AT NIGHT)
     Route: 048
  5. HALOPERIDOL [Concomitant]
     Active Substance: HALOPERIDOL
     Dosage: 6 MILLIGRAM, PM (AT NIGHT)
     Route: 065
  6. PROCYCLIDINE [Concomitant]
     Active Substance: PROCYCLIDINE
     Dosage: 5 MILLIGRAM, TID (3 TIMES A DAY)
     Route: 065
  7. VENLAFAXINE [Concomitant]
     Active Substance: VENLAFAXINE HYDROCHLORIDE
     Dosage: 300 MILLIGRAM, QD (MODIFIED RELEASE, ONCE DAILY)
     Route: 065
  8. ORPHENADRINE [Concomitant]
     Active Substance: ORPHENADRINE
     Dosage: 50 MILLIGRAM, TID (3 TIMES A DAY)
     Route: 065

REACTIONS (9)
  - Malaise [Unknown]
  - Dyspnoea [Unknown]
  - Peripheral swelling [Unknown]
  - Pain [Unknown]
  - C-reactive protein abnormal [Unknown]
  - Sepsis [Unknown]
  - Diabetic ketoacidosis [Unknown]
  - Confusional state [Unknown]
  - Therapy interrupted [Unknown]

NARRATIVE: CASE EVENT DATE: 20240801
